FAERS Safety Report 10385666 (Version 5)
Quarter: 2015Q2

REPORT INFORMATION
  Report Type: Report from Study
  Country: US (occurrence: US)
  Receive Date: 20140814
  Receipt Date: 20150428
  Transmission Date: 20150821
  Serious: No
  Sender: FDA-Public Use
  Company Number: US-ALEXION-A201403057

PATIENT

DRUGS (2)
  1. ANTICOAGULANT THERAPY [Suspect]
     Active Substance: UNSPECIFIED INGREDIENT
     Indication: ANTICOAGULANT THERAPY
     Route: 065
  2. SOLIRIS [Suspect]
     Active Substance: ECULIZUMAB
     Indication: PAROXYSMAL NOCTURNAL HAEMOGLOBINURIA
     Route: 042

REACTIONS (7)
  - Blood iron decreased [Unknown]
  - Sinus headache [Not Recovered/Not Resolved]
  - Red blood cell count decreased [Unknown]
  - Haemorrhoidal haemorrhage [Recovered/Resolved]
  - Blood pressure abnormal [Unknown]
  - Headache [Not Recovered/Not Resolved]
  - Blood count abnormal [Unknown]

NARRATIVE: CASE EVENT DATE: 20140711
